FAERS Safety Report 6600592-8 (Version None)
Quarter: 2010Q1

REPORT INFORMATION
  Report Type: 
  Country: None (occurrence: None)
  Receive Date: 20100224
  Receipt Date: 20091203
  Transmission Date: 20100710
  Serious: No
  Sender: FDA-Public Use
  Company Number: US-BAYER-200942242NA

PATIENT
  Age: 31 Year
  Sex: Female
  Weight: 64 kg

DRUGS (1)
  1. ULTRAVIST 240 [Suspect]
     Indication: COMPUTERISED TOMOGRAM ABDOMEN
     Dosage: TOTAL DAILY DOSE: 200 ML  UNIT DOSE: 200 ML
     Route: 042
     Dates: start: 20091203, end: 20091203

REACTIONS (2)
  - NAUSEA [None]
  - URTICARIA [None]
